FAERS Safety Report 20130185 (Version 4)
Quarter: 2022Q3

REPORT INFORMATION
  Report Type: Spontaneous
  Country: GB (occurrence: GB)
  Receive Date: 20211130
  Receipt Date: 20220721
  Transmission Date: 20221027
  Serious: Yes (Death, Hospitalization, Other)
  Sender: FDA-Public Use
  Company Number: GB-ROCHE-2094639

PATIENT
  Age: 44 Year
  Sex: Female

DRUGS (68)
  1. TRASTUZUMAB [Suspect]
     Active Substance: TRASTUZUMAB
     Indication: HER2 positive breast cancer
     Dosage: 798 MILLIGRAM
     Route: 042
     Dates: start: 20161020, end: 20161020
  2. TRASTUZUMAB [Suspect]
     Active Substance: TRASTUZUMAB
     Dosage: 600 MILLIGRAM, Q3WK
     Route: 042
     Dates: start: 20161117
  3. TRASTUZUMAB [Suspect]
     Active Substance: TRASTUZUMAB
     Dosage: 300 MILLIGRAM
     Route: 042
     Dates: start: 20181214
  4. DOCETAXEL [Suspect]
     Active Substance: DOCETAXEL
     Indication: HER2 positive breast cancer
     Dosage: 120 MILLIGRAM, Q3WK, 6 CYCLES
     Route: 042
     Dates: start: 20161117
  5. PERTUZUMAB [Suspect]
     Active Substance: PERTUZUMAB
     Indication: HER2 positive breast cancer
     Dosage: 840 MILLIGRAM
     Route: 042
     Dates: start: 20161020, end: 20161020
  6. PERTUZUMAB [Suspect]
     Active Substance: PERTUZUMAB
     Dosage: 420 MILLIGRAM, Q3WK
     Route: 042
     Dates: start: 20161117, end: 20181122
  7. FILGRASTIM [Concomitant]
     Active Substance: FILGRASTIM
     Indication: Product used for unknown indication
     Dosage: 480 MICROGRAM
     Route: 058
     Dates: start: 20161118, end: 20161121
  8. AMOXICILLIN [Concomitant]
     Active Substance: AMOXICILLIN
     Indication: Rhinitis
     Dosage: 500 MILLIGRAM
     Route: 048
     Dates: start: 20181205, end: 20181205
  9. BUPRENORPHINE [Concomitant]
     Active Substance: BUPRENORPHINE
     Indication: Pain
     Dosage: UNK
     Route: 042
     Dates: start: 20161117, end: 20161117
  10. BUPRENORPHINE [Concomitant]
     Active Substance: BUPRENORPHINE
     Dosage: 10 MICROGRAM, QWK
     Route: 062
     Dates: start: 20181212, end: 20190326
  11. BUPRENORPHINE [Concomitant]
     Active Substance: BUPRENORPHINE
     Dosage: UNK
     Route: 062
     Dates: start: 20181023, end: 20181212
  12. BUPRENORPHINE [Concomitant]
     Active Substance: BUPRENORPHINE
     Dosage: 10 MILLIGRAM
     Route: 062
     Dates: start: 20170510, end: 20190326
  13. CANDESARTAN [Concomitant]
     Active Substance: CANDESARTAN
     Indication: Candida infection
     Dosage: 100 MILLIGRAM
     Route: 067
     Dates: start: 20180419, end: 20180419
  14. CANDESARTAN [Concomitant]
     Active Substance: CANDESARTAN
     Indication: Candida infection
  15. CLOTRIMAZOLE [Concomitant]
     Active Substance: CLOTRIMAZOLE
     Indication: Product used for unknown indication
     Dosage: 100 MILLIGRAM
     Dates: start: 20180419, end: 20180419
  16. HERBALS\SENNOSIDES [Concomitant]
     Active Substance: HERBALS\SENNOSIDES
     Indication: Product used for unknown indication
     Dosage: 15 MILLIGRAM, QD
     Route: 048
     Dates: start: 20170922, end: 20180404
  17. CHLORPHENIRAMINE MALEATE [Concomitant]
     Active Substance: CHLORPHENIRAMINE MALEATE
     Indication: Product used for unknown indication
     Dosage: 10 MILLIGRAM
     Route: 042
     Dates: start: 20161117, end: 20161117
  18. AMOXICILLIN\CLAVULANATE POTASSIUM [Concomitant]
     Active Substance: AMOXICILLIN\CLAVULANATE POTASSIUM
     Indication: Lower respiratory tract infection
     Dosage: 1500 MILLIGRAM, QD
     Route: 048
     Dates: start: 20161207
  19. AMOXICILLIN\CLAVULANATE POTASSIUM [Concomitant]
     Active Substance: AMOXICILLIN\CLAVULANATE POTASSIUM
     Dosage: 3.6 GRAM, QD
     Route: 042
     Dates: start: 20170122, end: 20170126
  20. AMOXICILLIN\CLAVULANATE POTASSIUM [Concomitant]
     Active Substance: AMOXICILLIN\CLAVULANATE POTASSIUM
     Dosage: 500 MILLIGRAM, QD
     Route: 048
     Dates: start: 20161207
  21. AMOXICILLIN\CLAVULANATE POTASSIUM [Concomitant]
     Active Substance: AMOXICILLIN\CLAVULANATE POTASSIUM
     Dosage: 500 MILLIGRAM, QD
     Route: 048
     Dates: start: 20170125, end: 20170130
  22. DEXAMETHASONE [Concomitant]
     Active Substance: DEXAMETHASONE
     Indication: Seizure
     Dosage: 2 MILLIGRAM, QD
     Route: 048
     Dates: start: 20170831, end: 20180308
  23. DEXAMETHASONE [Concomitant]
     Active Substance: DEXAMETHASONE
     Indication: Visual impairment
     Dosage: 0.25 MILLIGRAM, QD
     Route: 048
     Dates: start: 20180419, end: 20180510
  24. DEXAMETHASONE [Concomitant]
     Active Substance: DEXAMETHASONE
     Dosage: 4 MILLIGRAM, QD
     Route: 048
     Dates: start: 20170126, end: 20170308
  25. DEXAMETHASONE [Concomitant]
     Active Substance: DEXAMETHASONE
     Dosage: 0.25 UG, QD
     Route: 048
     Dates: start: 20180621, end: 20190326
  26. DEXAMETHASONE [Concomitant]
     Active Substance: DEXAMETHASONE
     Dosage: 6 MILLIGRAM
     Route: 048
     Dates: start: 20181205, end: 20181205
  27. DEXAMETHASONE [Concomitant]
     Active Substance: DEXAMETHASONE
     Dosage: 1 MILLIGRAM, QD
     Route: 048
     Dates: start: 20170831, end: 20180308
  28. DEXAMETHASONE [Concomitant]
     Active Substance: DEXAMETHASONE
     Dosage: 6 MILLIGRAM, QD
     Route: 048
     Dates: start: 20170125, end: 20190326
  29. DEXAMETHASONE [Concomitant]
     Active Substance: DEXAMETHASONE
     Dosage: 0.5 MILLIGRAM, QD
     Route: 048
     Dates: start: 20180308, end: 20180419
  30. DEXAMETHASONE [Concomitant]
     Active Substance: DEXAMETHASONE
     Dosage: 12 MILLIGRAM, QD
     Route: 048
     Dates: start: 20181214, end: 20190124
  31. DEXAMETHASONE [Concomitant]
     Active Substance: DEXAMETHASONE
     Dosage: 14 MILLIGRAM, QD
     Route: 048
     Dates: start: 20190124
  32. DEXAMETHASONE [Concomitant]
     Active Substance: DEXAMETHASONE
     Dosage: 8 MILLIGRAM, QD
     Route: 048
     Dates: start: 20181208, end: 20181213
  33. DEXAMETHASONE [Concomitant]
     Active Substance: DEXAMETHASONE
     Dosage: 8 MILLIGRAM, QD
     Route: 048
     Dates: start: 20161116, end: 20161119
  34. DEXAMETHASONE [Concomitant]
     Active Substance: DEXAMETHASONE
     Dosage: 8 MILLIGRAM, BID
     Route: 048
     Dates: start: 20181206, end: 20181207
  35. DEXAMETHASONE [Concomitant]
     Active Substance: DEXAMETHASONE
     Dosage: UNK
     Route: 048
     Dates: start: 20190124, end: 20190326
  36. DICLOFENAC [Concomitant]
     Active Substance: DICLOFENAC
     Indication: Product used for unknown indication
     Dosage: 1 GTT DROPS
     Route: 061
     Dates: start: 20181023, end: 20190326
  37. FLUCLOXACILLIN [Concomitant]
     Active Substance: FLUCLOXACILLIN
     Indication: Product used for unknown indication
     Dosage: 500 MILLIGRAM, QID
     Route: 048
     Dates: start: 20170406, end: 20170413
  38. FLUCONAZOLE [Concomitant]
     Active Substance: FLUCONAZOLE
     Indication: Product used for unknown indication
     Dosage: 50 MILLIGRAM, QD
     Route: 048
     Dates: start: 20161207, end: 20161214
  39. FUROSEMIDE [Concomitant]
     Active Substance: FUROSEMIDE
     Indication: Oedema peripheral
     Dosage: 20 MILLIGRAM
     Route: 048
     Dates: start: 20170501
  40. FUROSEMIDE [Concomitant]
     Active Substance: FUROSEMIDE
     Dosage: 40 MILLIGRAM
     Route: 048
     Dates: start: 20170308
  41. GABAPENTIN [Concomitant]
     Active Substance: GABAPENTIN
     Indication: Pain
     Dosage: 300 MILLIGRAM, TID
     Route: 048
     Dates: start: 20171116, end: 20180621
  42. HYDROCORTISONE [Concomitant]
     Active Substance: HYDROCORTISONE
     Indication: Product used for unknown indication
     Dosage: 100 MILLIGRAM
     Route: 042
     Dates: start: 20161117, end: 20161117
  43. HYDROCORTISONE [Concomitant]
     Active Substance: HYDROCORTISONE
     Dosage: 50 MILLIGRAM
     Route: 042
     Dates: start: 20170122, end: 20170122
  44. IBUPROFEN [Concomitant]
     Active Substance: IBUPROFEN
     Indication: Pain
     Dosage: 200 MILLIGRAM, TID
     Route: 048
     Dates: start: 20180308, end: 20180621
  45. LANSOPRAZOLE [Concomitant]
     Active Substance: LANSOPRAZOLE
     Indication: Product used for unknown indication
     Dosage: 30 MILLIGRAM, QD
     Route: 048
     Dates: end: 20190326
  46. LEVETIRACETAM [Concomitant]
     Active Substance: LEVETIRACETAM
     Indication: Seizure
     Dosage: 500 MILLIGRAM, BID
     Route: 048
     Dates: start: 20190103, end: 20190326
  47. LEVETIRACETAM [Concomitant]
     Active Substance: LEVETIRACETAM
     Dosage: 250 MILLIGRAM, BID
     Route: 048
     Dates: start: 20181213, end: 20190103
  48. LEVETIRACETAM [Concomitant]
     Active Substance: LEVETIRACETAM
     Dosage: 250 MILLIGRAM, BID
     Route: 048
     Dates: start: 20190103
  49. METOCLOPRAMIDE [Concomitant]
     Active Substance: METOCLOPRAMIDE
     Indication: Product used for unknown indication
     Dosage: UNK
     Route: 042
     Dates: start: 20161117, end: 20161117
  50. METOCLOPRAMIDE [Concomitant]
     Active Substance: METOCLOPRAMIDE
     Dosage: 10 MILLIGRAM
     Route: 048
     Dates: start: 20170510, end: 20190326
  51. METOCLOPRAMIDE [Concomitant]
     Active Substance: METOCLOPRAMIDE
     Dosage: 10 MILLIGRAM
     Route: 042
     Dates: start: 20161117, end: 20161117
  52. METOCLOPRAMIDE [Concomitant]
     Active Substance: METOCLOPRAMIDE
     Dosage: UNK
     Dates: start: 20170922
  53. MORPHINE SULFATE [Concomitant]
     Active Substance: MORPHINE SULFATE
     Indication: Product used for unknown indication
     Dosage: 10 MILLIGRAM
     Route: 048
     Dates: start: 20170922
  54. NAPROXEN [Concomitant]
     Active Substance: NAPROXEN
     Indication: Product used for unknown indication
     Dosage: 500 MILLIGRAM, QD
     Route: 048
     Dates: start: 20170922
  55. ONDANSETRON [Concomitant]
     Active Substance: ONDANSETRON
     Indication: Nausea
     Dosage: 4 MILLIGRAM
     Route: 048
     Dates: start: 20170510, end: 20190326
  56. ORAMORPH SR SUSTAINED RELEASE [Concomitant]
     Active Substance: MORPHINE SULFATE
     Indication: Pain
     Dosage: 5 MILLIGRAM
     Route: 048
     Dates: start: 20180830, end: 20190326
  57. OXYCONTIN [Concomitant]
     Active Substance: OXYCODONE HYDROCHLORIDE
     Indication: Pain
     Dosage: UNK UNK, BID
     Route: 048
     Dates: start: 20171116, end: 20180621
  58. RAMIPRIL [Concomitant]
     Active Substance: RAMIPRIL
     Indication: Product used for unknown indication
     Dosage: 1.25 MILLIGRAM
     Route: 048
     Dates: start: 20170608
  59. TINZAPARIN [Concomitant]
     Active Substance: TINZAPARIN
     Indication: Product used for unknown indication
     Dosage: UNK, 4500 UNIT
     Route: 058
     Dates: start: 20181205, end: 20181212
  60. BISACODYL [Concomitant]
     Active Substance: BISACODYL
     Dosage: UNK
     Dates: start: 20170109, end: 20190326
  61. DALTEPARIN [Concomitant]
     Active Substance: DALTEPARIN
     Dosage: UNK
     Dates: start: 20170418, end: 20180510
  62. LACTULOSE [Concomitant]
     Active Substance: LACTULOSE
     Dosage: UNK
     Dates: start: 20180830, end: 20190326
  63. POLYETHYLENE GLYCOL 3350\POTASSIUM CHLORIDE\SODIUM BICARBONATE\SODIUM [Concomitant]
     Active Substance: POLYETHYLENE GLYCOL 3350\POTASSIUM CHLORIDE\SODIUM BICARBONATE\SODIUM CHLORIDE
     Dosage: UNK
     Route: 048
     Dates: start: 20171009, end: 20190326
  64. POLYETHYLENE GLYCOLS [Concomitant]
     Active Substance: POLYETHYLENE GLYCOLS
     Indication: Constipation
     Dosage: UNK UNK, QD
     Dates: start: 20170922, end: 20190326
  65. OXYCODONE [Concomitant]
     Active Substance: OXYCODONE
     Indication: Back pain
     Dosage: UNK
     Dates: start: 20171012, end: 20171101
  66. OXYCODONE [Concomitant]
     Active Substance: OXYCODONE
     Dosage: UNK
     Dates: start: 20171101, end: 20171130
  67. OXYCODONE [Concomitant]
     Active Substance: OXYCODONE
     Dosage: UNK
     Dates: start: 20171130, end: 20190326
  68. VOLTAROL [Concomitant]
     Active Substance: DICLOFENAC SODIUM
     Dosage: UNK
     Route: 061
     Dates: start: 20181023, end: 20190326

REACTIONS (2)
  - Disease progression [Fatal]
  - Off label use [Unknown]
